FAERS Safety Report 9144635 (Version 1)
Quarter: 2013Q1

REPORT INFORMATION
  Report Type: Spontaneous
  Country: AT (occurrence: AT)
  Receive Date: 20130306
  Receipt Date: 20130306
  Transmission Date: 20140127
  Serious: Yes (Hospitalization)
  Sender: FDA-Public Use
  Company Number: AT-ROCHE-1196438

PATIENT
  Age: 27 Year
  Sex: Male
  Weight: 73 kg

DRUGS (8)
  1. PROXEN [Suspect]
     Indication: PAIN
     Route: 048
  2. PROXEN [Suspect]
     Indication: INFLUENZA LIKE ILLNESS
  3. BIOCEF [Suspect]
     Indication: INFLUENZA LIKE ILLNESS
     Route: 048
  4. AMBROXOL [Concomitant]
  5. NEOCITRAN SINUS [Concomitant]
  6. ACETANILIDE [Concomitant]
  7. ASCORBIC ACID [Concomitant]
  8. PHENIRAMINE MALEATE [Concomitant]

REACTIONS (2)
  - Penile ulceration [Recovered/Resolved]
  - Penile ulceration [None]
